FAERS Safety Report 8970797 (Version 2)
Quarter: 2013Q1

REPORT INFORMATION
  Report Type: Spontaneous
  Country: US (occurrence: US)
  Receive Date: 20121218
  Receipt Date: 20130110
  Transmission Date: 20140127
  Serious: Yes (Hospitalization)
  Sender: FDA-Public Use
  Company Number: US-ROXANE LABORATORIES, INC.-2012-RO-02586RO

PATIENT
  Sex: Female

DRUGS (1)
  1. VALACYCLOVIR HYDROCHLORIDE [Suspect]

REACTIONS (6)
  - Gastrointestinal disorder [Unknown]
  - Anaemia [Unknown]
  - Drug ineffective [Unknown]
  - Malaise [Unknown]
  - Viral infection [Unknown]
  - Product quality issue [Unknown]
